FAERS Safety Report 4615355-2 (Version None)
Quarter: 2005Q1

REPORT INFORMATION
  Report Type: 
  Country: None (occurrence: None)
  Receive Date: 20050317
  Receipt Date: 20050304
  Transmission Date: 20050727
  Serious: Yes (Hospitalization)
  Sender: FDA-Public Use
  Company Number: 2005UW03788

PATIENT
  Age: 51 Year
  Sex: Female

DRUGS (14)
  1. TENORMIN [Suspect]
     Dosage: 25 MG DAILY PO
     Route: 048
     Dates: start: 20030801
  2. COLACE [Concomitant]
  3. METFORMIN [Concomitant]
  4. ASAPHEN [Concomitant]
  5. ALTACE [Concomitant]
  6. EZETROL [Concomitant]
  7. LOXAPINE [Concomitant]
  8. CLOZAPINE [Concomitant]
  9. PHENERGAN [Concomitant]
  10. PAXIL [Concomitant]
  11. DALMANE [Concomitant]
  12. TOPAMAX [Concomitant]
  13. AVANDIA [Concomitant]
  14. ADVIL [Concomitant]

REACTIONS (2)
  - CONFUSIONAL STATE [None]
  - HEPATITIS [None]
